FAERS Safety Report 7820844-3 (Version None)
Quarter: 2011Q4

REPORT INFORMATION
  Report Type: 
  Country: None (occurrence: None)
  Receive Date: 20111018
  Receipt Date: 20101229
  Transmission Date: 20120403
  Serious: No
  Sender: FDA-Public Use
  Company Number: US-ASTRAZENECA-2010SE06456

PATIENT
  Age: 80 Year
  Sex: Female
  Weight: 38.6 kg

DRUGS (13)
  1. ZITHROMICIN [Concomitant]
     Indication: MYCOBACTERIUM AVIUM COMPLEX INFECTION
  2. REFAMPIN [Concomitant]
     Indication: MYCOBACTERIUM AVIUM COMPLEX INFECTION
  3. SYMBICORT [Suspect]
     Indication: ASTHMA
     Dosage: 320/9  MICROGRAM BID
     Route: 055
     Dates: start: 20080101
  4. SYMBICORT [Suspect]
     Indication: MYCOBACTERIUM AVIUM COMPLEX INFECTION
     Dosage: 320/9  MICROGRAM BID
     Route: 055
     Dates: start: 20080101
  5. SINGULAIR [Concomitant]
     Indication: MYCOBACTERIUM AVIUM COMPLEX INFECTION
  6. ALBUTEROL [Concomitant]
     Indication: MYCOBACTERIUM AVIUM COMPLEX INFECTION
  7. MUCINEX D [Concomitant]
     Indication: MYCOBACTERIUM AVIUM COMPLEX INFECTION
  8. SYNTHROID [Concomitant]
  9. FLONASE [Concomitant]
  10. LOPRESSOR [Concomitant]
  11. ETHAMBUTOL HYDROCHLORIDE [Concomitant]
     Indication: MYCOBACTERIUM AVIUM COMPLEX INFECTION
  12. ACIPHEX [Concomitant]
  13. PRESERVE VISION WITH LUTEIN [Concomitant]

REACTIONS (7)
  - BACK PAIN [None]
  - TONGUE DISCOLOURATION [None]
  - ANOSMIA [None]
  - DIVERTICULITIS [None]
  - WEIGHT DECREASED [None]
  - CHEST PAIN [None]
  - DYSPHONIA [None]
